FAERS Safety Report 9524208 (Version 2)
Quarter: 2013Q4

REPORT INFORMATION
  Report Type: Spontaneous
  Country: IT (occurrence: IT)
  Receive Date: 20130916
  Receipt Date: 20131106
  Transmission Date: 20140711
  Serious: Yes (Other)
  Sender: FDA-Public Use
  Company Number: IT-ROCHE-1273054

PATIENT
  Sex: Male
  Weight: 50 kg

DRUGS (2)
  1. ZELBORAF [Suspect]
     Indication: METASTATIC MALIGNANT MELANOMA
     Route: 048
     Dates: start: 20130308, end: 20130731
  2. IMIGRAN [Concomitant]
     Indication: CLUSTER HEADACHE
     Route: 065

REACTIONS (1)
  - Malignant neoplasm progression [Unknown]
